FAERS Safety Report 6929898-X (Version None)
Quarter: 2010Q3

REPORT INFORMATION
  Report Type: 
  Country: None (occurrence: None)
  Receive Date: 20100813
  Receipt Date: 20100803
  Transmission Date: 20110219
  Serious: Yes (Hospitalization)
  Sender: FDA-Public Use
  Company Number: 014954

PATIENT
  Sex: Female
  Weight: 100 kg

DRUGS (8)
  1. CERTOLIZUMAB PEGOL (CERTOLIZUMAB PEGOL) [Suspect]
     Indication: RHEUMATOID ARTHRITIS
     Dosage: SEE IMAGE;  SUBCUTANEOUS
     Route: 058
     Dates: start: 20050720, end: 20060605
  2. CERTOLIZUMAB PEGOL (CERTOLIZUMAB PEGOL) [Suspect]
     Indication: RHEUMATOID ARTHRITIS
     Dosage: SEE IMAGE;  SUBCUTANEOUS
     Route: 058
     Dates: start: 20060719, end: 20071205
  3. CERTOLIZUMAB PEGOL (CERTOLIZUMAB PEGOL) [Suspect]
     Indication: RHEUMATOID ARTHRITIS
     Dosage: SEE IMAGE;  SUBCUTANEOUS
     Route: 058
     Dates: start: 20071219, end: 20100615
  4. CERTOLIZUMAB PEGOL (CERTOLIZUMAB PEGOL) [Suspect]
     Indication: RHEUMATOID ARTHRITIS
     Dosage: SEE IMAGE;  SUBCUTANEOUS
     Route: 058
     Dates: start: 20100713
  5. METHOTREXATE [Concomitant]
  6. PLAQUENIL [Concomitant]
  7. DICLOFENAC [Concomitant]
  8. FOLIC ACID [Concomitant]

REACTIONS (1)
  - ABDOMINAL HERNIA [None]
